FAERS Safety Report 8994381 (Version 1)
Quarter: 2012Q4

REPORT INFORMATION
  Report Type: Spontaneous
  Country: US (occurrence: None)
  Receive Date: 20121227
  Receipt Date: 20121227
  Transmission Date: 20130627
  Serious: Yes (Hospitalization, Other)
  Sender: FDA-Public Use
  Company Number: None

PATIENT
  Sex: Male
  Weight: 56.7 kg

DRUGS (1)
  1. SULFAMETHOXAZOLE + TRIMETHOPRIM [Suspect]
     Indication: ENLARGED PROSTATE
     Dosage: 20 ml every 12 hours po
     Route: 048
     Dates: start: 20121216, end: 20121220

REACTIONS (8)
  - Diarrhoea [None]
  - Decreased appetite [None]
  - Dysuria [None]
  - Tremor [None]
  - Flushing [None]
  - Disorientation [None]
  - Dizziness [None]
  - Depression [None]
